FAERS Safety Report 11862277 (Version 1)
Quarter: 2015Q4

REPORT INFORMATION
  Report Type: Spontaneous
  Country: US (occurrence: US)
  Receive Date: 20151222
  Receipt Date: 20151222
  Transmission Date: 20160305
  Serious: No
  Sender: FDA-Public Use
  Company Number: US-ASTRAZENECA-2015SF28927

PATIENT
  Sex: Female

DRUGS (4)
  1. SEROQUEL XR [Suspect]
     Active Substance: QUETIAPINE FUMARATE
     Indication: SLEEP DISORDER
     Dosage: EVERY OTHER DAY
     Route: 048
  2. SEROQUEL XR [Suspect]
     Active Substance: QUETIAPINE FUMARATE
     Indication: ANXIETY
     Dosage: EVERY OTHER DAY
     Route: 048
  3. SEROQUEL XR [Suspect]
     Active Substance: QUETIAPINE FUMARATE
     Indication: SLEEP DISORDER
     Route: 048
     Dates: start: 2015
  4. SEROQUEL XR [Suspect]
     Active Substance: QUETIAPINE FUMARATE
     Indication: ANXIETY
     Route: 048
     Dates: start: 2015

REACTIONS (14)
  - Activities of daily living impaired [Unknown]
  - Somnolence [Unknown]
  - Constipation [Unknown]
  - Hypokinesia [Unknown]
  - Gastric disorder [Unknown]
  - Dizziness [Unknown]
  - Dysstasia [Unknown]
  - Insomnia [Unknown]
  - Nasal congestion [Unknown]
  - Dry mouth [Unknown]
  - Intentional product misuse [Unknown]
  - Feeling abnormal [Unknown]
  - Fatigue [Unknown]
  - Off label use [Unknown]
